FAERS Safety Report 13332491 (Version 1)
Quarter: 2017Q1

REPORT INFORMATION
  Report Type: Report from Study
  Country: US (occurrence: US)
  Receive Date: 20170314
  Receipt Date: 20170314
  Transmission Date: 20170428
  Serious: Yes (Hospitalization, Other)
  Sender: FDA-Public Use
  Company Number: US-BRISTOL-MYERS SQUIBB COMPANY-BMS-2017-020450

PATIENT
  Sex: Male
  Weight: 79.9 kg

DRUGS (2)
  1. OXYCODONE [Suspect]
     Active Substance: OXYCODONE
     Indication: PRODUCT USED FOR UNKNOWN INDICATION
     Route: 065
  2. NIVOLUMAB [Suspect]
     Active Substance: NIVOLUMAB
     Indication: NEOPLASM
     Dosage: UNK, QCYCLE
     Route: 042
     Dates: start: 20161019, end: 20161019

REACTIONS (12)
  - Anaemia [Recovering/Resolving]
  - Fall [Unknown]
  - Packed red blood cell transfusion [Unknown]
  - Hypophosphataemia [Recovering/Resolving]
  - Aspartate aminotransferase increased [Unknown]
  - Hypoalbuminaemia [Unknown]
  - Hypomagnesaemia [Unknown]
  - Diarrhoea [Unknown]
  - Muscular weakness [Unknown]
  - Malignant neoplasm progression [Unknown]
  - Dehydration [Unknown]
  - Hypocalcaemia [Unknown]

NARRATIVE: CASE EVENT DATE: 20161026
